FAERS Safety Report 5683046-5 (Version None)
Quarter: 2008Q1

REPORT INFORMATION
  Report Type: 
  Country: None (occurrence: None)
  Receive Date: 20080327
  Receipt Date: 20080318
  Transmission Date: 20080703
  Serious: Yes (Other)
  Sender: FDA-Public Use
  Company Number: US-PURDUE-USA_2008_0032043

PATIENT
  Age: 78 Year
  Sex: Female

DRUGS (3)
  1. MORPHINE SULFATE [Suspect]
     Indication: PAIN
     Dosage: 1 MG, SEE TEXT
     Route: 042
  2. LORAZEPAM [Concomitant]
  3. OPIUM AND BELLADONNA [Concomitant]
     Indication: BLADDER SPASM
     Dosage: UNK, Q8H
     Route: 054

REACTIONS (2)
  - DELIRIUM [None]
  - PROCEDURAL PAIN [None]
